FAERS Safety Report 7925816-6 (Version None)
Quarter: 2011Q4

REPORT INFORMATION
  Report Type: 
  Country: None (occurrence: None)
  Receive Date: 20111118
  Receipt Date: 20110413
  Transmission Date: 20120403
  Serious: No
  Sender: FDA-Public Use
  Company Number: US-AMGEN-USASP2011021119

PATIENT
  Sex: Female

DRUGS (1)
  1. ENBREL [Suspect]
     Indication: RHEUMATOID ARTHRITIS
     Dosage: 50 MG, QWK
     Dates: start: 20050301

REACTIONS (6)
  - MOBILITY DECREASED [None]
  - JOINT EFFUSION [None]
  - ABASIA [None]
  - JOINT SWELLING [None]
  - OEDEMA PERIPHERAL [None]
  - WALKING AID USER [None]
